FAERS Safety Report 15560742 (Version 1)
Quarter: 2018Q4

REPORT INFORMATION
  Report Type: Spontaneous
  Country: US (occurrence: US)
  Receive Date: 20181029
  Receipt Date: 20181029
  Transmission Date: 20190205
  Serious: No
  Sender: FDA-Public Use
  Company Number: US-PFIZER INC-2018441028

PATIENT
  Age: 54 Year
  Sex: Male

DRUGS (1)
  1. XELJANZ XR [Suspect]
     Active Substance: TOFACITINIB CITRATE
     Indication: RHEUMATOID ARTHRITIS
     Dosage: 11 MG, DAILY
     Route: 048
     Dates: start: 201710

REACTIONS (6)
  - Abdominal discomfort [Unknown]
  - Condition aggravated [Unknown]
  - Flatulence [Unknown]
  - Paranasal sinus hypersecretion [Unknown]
  - Dyspepsia [Unknown]
  - Abdominal distension [Unknown]
